FAERS Safety Report 5215115-8 (Version None)
Quarter: 2007Q1

REPORT INFORMATION
  Report Type: 
  Country: None (occurrence: None)
  Receive Date: 20070122
  Receipt Date: 20070110
  Transmission Date: 20070707
  Serious: Yes (Other)
  Sender: FDA-Public Use
  Company Number: JP-PFIZER INC-2007003213

PATIENT

DRUGS (2)
  1. ZYVOX [Suspect]
     Route: 042
  2. ZYVOX [Suspect]
     Route: 048
     Dates: end: 20070106

REACTIONS (2)
  - BLOOD CREATININE INCREASED [None]
  - QUADRIPLEGIA [None]
